FAERS Safety Report 21644471 (Version 1)
Quarter: 2022Q4

REPORT INFORMATION
  Report Type: Report from Study
  Country: US (occurrence: US)
  Receive Date: 20221125
  Receipt Date: 20221125
  Transmission Date: 20230112
  Serious: No
  Sender: FDA-Public Use
  Company Number: US-ABBVIE-4161687

PATIENT
  Age: 55 Year
  Sex: Male

DRUGS (1)
  1. HUMIRA [Suspect]
     Active Substance: ADALIMUMAB
     Indication: Product used for unknown indication
     Route: 058

REACTIONS (5)
  - Diabetes mellitus [Recovered/Resolved]
  - Medical device site haemorrhage [Unknown]
  - Sinusitis [Recovering/Resolving]
  - Device dislocation [Recovered/Resolved]
  - Rhinalgia [Unknown]

NARRATIVE: CASE EVENT DATE: 20220901
